FAERS Safety Report 7207695-8 (Version None)
Quarter: 2011Q1

REPORT INFORMATION
  Report Type: 
  Country: None (occurrence: None)
  Receive Date: 20110103
  Receipt Date: 20101230
  Transmission Date: 20110831
  Serious: Yes (Hospitalization, Other)
  Sender: FDA-Public Use
  Company Number: FR-PFIZER INC-2010181784

PATIENT
  Age: 73 Year
  Sex: Male

DRUGS (1)
  1. VIAGRA [Suspect]
     Dosage: 1 DF, MONTHLY
     Route: 048

REACTIONS (10)
  - SUPRAVENTRICULAR EXTRASYSTOLES [None]
  - PALLOR [None]
  - DYSPNOEA EXERTIONAL [None]
  - MALAISE [None]
  - PARAESTHESIA [None]
  - DIARRHOEA [None]
  - BLOOD PRESSURE DECREASED [None]
  - LOSS OF CONSCIOUSNESS [None]
  - FALL [None]
  - FACE INJURY [None]
